FAERS Safety Report 25525819 (Version 1)
Quarter: 2025Q3

REPORT INFORMATION
  Report Type: Spontaneous
  Country: US (occurrence: None)
  Receive Date: 20250707
  Receipt Date: 20250707
  Transmission Date: 20251021
  Serious: Yes (Death, Life-Threatening, Hospitalization)
  Sender: FDA-CTU
  Company Number: None

PATIENT
  Age: 61 Year
  Sex: Male

DRUGS (2)
  1. ENOXAPARIN SODIUM [Suspect]
     Active Substance: ENOXAPARIN SODIUM
     Indication: Angiogram
     Dosage: OTHER QUANTITY : 10 INJECTION(S);?FREQUENCY : EVERY 12 HOURS;?OTHER ROUTE : INJECTED INTO ABDOMEN;?
     Route: 050
     Dates: start: 20240331, end: 20240409
  2. WARFARIN [Suspect]
     Active Substance: WARFARIN

REACTIONS (1)
  - Haemorrhagic stroke [None]

NARRATIVE: CASE EVENT DATE: 20240408
